FAERS Safety Report 5420898-8 (Version None)
Quarter: 2007Q3

REPORT INFORMATION
  Report Type: 
  Country: None (occurrence: None)
  Receive Date: 20070821
  Receipt Date: 20070816
  Transmission Date: 20080115
  Serious: Yes (Other)
  Sender: FDA-Public Use
  Company Number: GB-JNJFOC-20070803708

PATIENT
  Age: 12 Year
  Sex: Female

DRUGS (3)
  1. IBUPROFEN TABLETS [Suspect]
     Indication: DRUG USE FOR UNKNOWN INDICATION
  2. POLYMYXIN [Suspect]
     Indication: ANTIBIOTIC PROPHYLAXIS
  3. TOBRAMYCIN [Suspect]
     Indication: ANTIBIOTIC PROPHYLAXIS
     Dosage: 4.08 MG/KG TWICE A DAY, INTRAVENOUS
     Route: 042

REACTIONS (1)
  - RENAL FAILURE ACUTE [None]
